FAERS Safety Report 9652491 (Version 1)
Quarter: 2013Q4

REPORT INFORMATION
  Report Type: Spontaneous
  Country: CL (occurrence: CL)
  Receive Date: 20131029
  Receipt Date: 20131029
  Transmission Date: 20140711
  Serious: Yes (Disabling)
  Sender: FDA-Public Use
  Company Number: CL-009507513-1310CHL012940

PATIENT
  Sex: Female

DRUGS (2)
  1. IMPLANON [Suspect]
     Indication: CONTRACEPTION
     Dosage: FREQUENCY- TRIENNIAL; TOTAL DAILY DOSE 25-70 MCG DAILY
     Route: 059
  2. IMPLANON [Suspect]
     Dosage: DOSE 2: FREQUENCY- TRIENNIAL; TOTAL DAILY DOSE 25-70 MCG DAILY
     Route: 059

REACTIONS (6)
  - Sensory loss [Unknown]
  - Movement disorder [Unknown]
  - Movement disorder [Unknown]
  - Pain in extremity [Unknown]
  - Axillary pain [Unknown]
  - Breast pain [Unknown]
